FAERS Safety Report 7383221-8 (Version None)
Quarter: 2011Q1

REPORT INFORMATION
  Report Type: 
  Country: None (occurrence: None)
  Receive Date: 20110330
  Receipt Date: 20110322
  Transmission Date: 20110831
  Serious: Yes (Hospitalization)
  Sender: FDA-Public Use
  Company Number: US-US-EMD SERONO, INC.-7049161

PATIENT
  Sex: Male

DRUGS (5)
  1. ZOLOFT [Suspect]
     Dates: start: 20100101, end: 20100101
  2. ATIVAN [Concomitant]
  3. REBIF [Suspect]
     Indication: MULTIPLE SCLEROSIS
     Route: 058
     Dates: start: 20080915
  4. BACLOFEN [Concomitant]
  5. ABILIFY [Suspect]
     Dates: start: 20100401, end: 20100101

REACTIONS (11)
  - INTERVERTEBRAL DISC PROTRUSION [None]
  - DEPRESSION [None]
  - ABNORMAL BEHAVIOUR [None]
  - BACK INJURY [None]
  - DEHYDRATION [None]
  - FALL [None]
  - GAIT DISTURBANCE [None]
  - SUICIDE ATTEMPT [None]
  - GRAND MAL CONVULSION [None]
  - INTENTIONAL OVERDOSE [None]
  - MOOD SWINGS [None]
